FAERS Safety Report 6307724-X (Version None)
Quarter: 2009Q3

REPORT INFORMATION
  Report Type: 
  Country: None (occurrence: None)
  Receive Date: 20090812
  Receipt Date: 20090812
  Transmission Date: 20100115
  Serious: No
  Sender: FDA-Public Use
  Company Number: None

PATIENT
  Age: 92 Year
  Sex: Female

DRUGS (1)
  1. RANITIDINE TABLETS, 75MG (WOCKHARDT) [Suspect]
     Indication: SEASONAL ALLERGY
     Dosage: 75MG ONCE DAILY 047
     Dates: start: 20090710

REACTIONS (1)
  - FAECES DISCOLOURED [None]
